FAERS Safety Report 4591237-X (Version None)
Quarter: 2005Q1

REPORT INFORMATION
  Report Type: 
  Country: None (occurrence: None)
  Receive Date: 20050222
  Receipt Date: 20050203
  Transmission Date: 20050727
  Serious: Yes (Hospitalization)
  Sender: FDA-Public Use
  Company Number: DSA_25855_2005

PATIENT
  Age: 66 Year
  Sex: Female

DRUGS (7)
  1. TAVOR [Suspect]
     Dosage: 10 MG ONCE PO
     Route: 048
     Dates: start: 20050131, end: 20050131
  2. ANAFRANIL [Suspect]
     Dosage: 5175 MG ONCE PO
     Route: 048
     Dates: start: 20050131, end: 20050131
  3. DELIX [Suspect]
     Dosage: DF ONCE PO
     Route: 048
     Dates: start: 20050131, end: 20050131
  4. DETRUSITOL [Suspect]
     Dosage: DF ONCE PO
     Route: 048
     Dates: start: 20050131, end: 20050131
  5. ERGENYL CHRONO [Suspect]
     Dosage: DROPPERFUL ONCE PO
     Route: 048
     Dates: start: 20050131, end: 20050131
  6. STANGYL [Suspect]
     Dosage: DF ONCE PO
     Route: 048
     Dates: start: 20050131, end: 20050131
  7. ZYPREXA [Suspect]
     Dosage: 15 MG ONCE PO
     Route: 048
     Dates: start: 20050131, end: 20050131

REACTIONS (4)
  - BOWEL SOUNDS ABNORMAL [None]
  - INTENTIONAL MISUSE [None]
  - MYOCLONUS [None]
  - SOMNOLENCE [None]
